FAERS Safety Report 4869692-7 (Version None)
Quarter: 2005Q4

REPORT INFORMATION
  Report Type: 
  Country: None (occurrence: None)
  Receive Date: 20051223
  Receipt Date: 20051215
  Transmission Date: 20060501
  Serious: Yes (Disabling, Other)
  Sender: FDA-Public Use
  Company Number: BEWYE181628NOV05

PATIENT

DRUGS (5)
  1. EFFEXOR [Suspect]
     Indication: DEPRESSION
     Dosage: 375 MG / DAY
     Route: 048
     Dates: start: 19990101, end: 20030801
  2. BETA BLOCKING AGENTS (BETA BLOCKING AGENTS) [Concomitant]
  3. TRAZOLAN (TRAZODONE HYDROCHLORIDE) [Concomitant]
  4. LEXOTAN (BROMAZEPAM) [Concomitant]
  5. CHOLESTEROL- AND TRIGLYCERIDE REDUCERS (CHOLESTEROL- AND TRIGYLCERIDE [Concomitant]

REACTIONS (3)
  - ABASIA [None]
  - CONDITION AGGRAVATED [None]
  - PARKINSONISM [None]
